FAERS Safety Report 5904196-1 (Version None)
Quarter: 2008Q3

REPORT INFORMATION
  Report Type: 
  Country: None (occurrence: None)
  Receive Date: 20080930
  Receipt Date: 20080930
  Transmission Date: 20090109
  Serious: Yes (Hospitalization)
  Sender: FDA-Public Use
  Company Number: None

PATIENT
  Age: 71 Year
  Sex: Male
  Weight: 95.2 kg

DRUGS (3)
  1. BEVACIUMAB 7.5 [Suspect]
     Indication: GASTRIC CANCER
     Dosage: 7.5 EVERY 21 DAYS IV DRIP
     Route: 041
     Dates: start: 20080926, end: 20080926
  2. DOCETAXEL [Suspect]
     Indication: GASTRIC CANCER
     Dosage: 70 EVERY 21 DAYS IV DRIP
     Route: 041
     Dates: start: 20080926, end: 20080926
  3. OXALIPLATIN [Suspect]
     Indication: GASTRIC CANCER
     Dosage: 75 EVERY 21 DAYS IV DRIP
     Route: 041
     Dates: start: 20080926, end: 20080926

REACTIONS (7)
  - ATELECTASIS [None]
  - DEHYDRATION [None]
  - DIARRHOEA [None]
  - FEELING ABNORMAL [None]
  - NAUSEA [None]
  - PNEUMONIA [None]
  - PYREXIA [None]
